FAERS Safety Report 5399981-1 (Version None)
Quarter: 2007Q3

REPORT INFORMATION
  Report Type: 
  Country: None (occurrence: None)
  Receive Date: 20070725
  Receipt Date: 20070712
  Transmission Date: 20080115
  Serious: Yes (Other)
  Sender: FDA-Public Use
  Company Number: S07-SWI-03109-01

PATIENT
  Age: 38 Year
  Sex: Female
  Weight: 57 kg

DRUGS (3)
  1. ESCITALOPRAM [Suspect]
     Indication: DEPRESSION
     Dosage: 10 MG QD PO
     Route: 048
     Dates: start: 20070607
  2. NOZINAN (LEVOMEPROMAZINE) [Suspect]
     Indication: SLEEP DISORDER
     Dosage: 12 DROPS QD PO
     Route: 048
  3. VALPROIC ACID [Suspect]
     Indication: MANIA
     Dosage: 300 MG QD PO
     Route: 048
     Dates: start: 20070617, end: 20070620

REACTIONS (1)
  - BRADYCARDIA [None]
